FAERS Safety Report 7115583-0 (Version None)
Quarter: 2010Q4

REPORT INFORMATION
  Report Type: 
  Country: None (occurrence: None)
  Receive Date: 20101122
  Receipt Date: 20101117
  Transmission Date: 20110411
  Serious: Yes (Hospitalization)
  Sender: FDA-Public Use
  Company Number: US-ALLERGAN-1014908US

PATIENT
  Age: 62 Year
  Sex: Male
  Weight: 88.6 kg

DRUGS (10)
  1. BLINDED BOTULINUM TOXIN TYPE A - GENERAL (9060X) [Suspect]
     Indication: URINARY TRACT DISORDER
     Dosage: UNK
     Dates: start: 20101115, end: 20101115
  2. PLACEBO [Suspect]
     Indication: URINARY TRACT DISORDER
     Dosage: UNK
     Dates: start: 20101115, end: 20101115
  3. BLINDED BOTULINUM TOXIN TYPE A - GENERAL (9060X) [Suspect]
     Indication: BENIGN PROSTATIC HYPERPLASIA
  4. PLACEBO [Suspect]
     Indication: BENIGN PROSTATIC HYPERPLASIA
  5. BACTRIUM DS [Concomitant]
     Dosage: UNK
     Route: 048
     Dates: start: 20101114, end: 20101116
  6. AUGMENTIN [Concomitant]
     Dosage: 875 MG, BID
     Route: 048
     Dates: start: 20101114, end: 20101116
  7. SODIUM PHOSPHATES [Concomitant]
     Dosage: UNK
     Route: 054
     Dates: start: 20101115, end: 20101115
  8. SODIUM PHOSPHATES [Concomitant]
     Dosage: UNK
     Route: 054
     Dates: start: 20101006, end: 20101006
  9. LIDOCAINE [Concomitant]
     Dosage: 10 ML, SINGLE
     Route: 061
     Dates: start: 20101006, end: 20101006
  10. LIDOCAINE [Concomitant]
     Dosage: 10 ML, SINGLE
     Route: 061
     Dates: start: 20101115, end: 20101115

REACTIONS (1)
  - UROSEPSIS [None]
